FAERS Safety Report 8249617-7 (Version None)
Quarter: 2012Q1

REPORT INFORMATION
  Report Type: 
  Country: None (occurrence: None)
  Receive Date: 20120327
  Receipt Date: 20120315
  Transmission Date: 20120608
  Serious: Yes (Life-Threatening, Hospitalization, Other)
  Sender: FDA-Public Use
  Company Number: WAES 1203USA02362

PATIENT
  Age: 59 Year
  Sex: Male

DRUGS (6)
  1. VYTORIN [Suspect]
     Indication: ACUTE CORONARY SYNDROME
     Dosage: 10-40 MG/DAILY/PO
     Route: 048
     Dates: start: 20061127
  2. BISOPROLOL FUMARATE [Concomitant]
  3. METFORMIN HCL [Concomitant]
  4. PLACEBO [Suspect]
     Indication: ACUTE CORONARY SYNDROME
     Dosage: PO
     Route: 048
     Dates: start: 20061127
  5. ASPIRIN [Concomitant]
  6. PLACEBO [Suspect]
     Indication: ACUTE CORONARY SYNDROME
     Dosage: PO
     Route: 048
     Dates: start: 20061127

REACTIONS (3)
  - PROSTATE CANCER METASTATIC [None]
  - ABDOMINAL PAIN [None]
  - PAIN IN EXTREMITY [None]
